FAERS Safety Report 17030747 (Version 1)
Quarter: 2019Q4

REPORT INFORMATION
  Report Type: Spontaneous
  Country: FR (occurrence: FR)
  Receive Date: 20191114
  Receipt Date: 20191114
  Transmission Date: 20200122
  Serious: Yes (Other)
  Sender: FDA-Public Use
  Company Number: FR-MYLANLABS-2019M1108559

PATIENT
  Age: 76 Year
  Sex: Female
  Weight: 54.8 kg

DRUGS (13)
  1. UVEDOSE [Suspect]
     Active Substance: CHOLECALCIFEROL
     Indication: VITAMIN D DEFICIENCY
     Dosage: 1 AMPOULE TOUS LES 15 JOURS
     Route: 048
     Dates: start: 20190424, end: 20190514
  2. DIFFU K [Concomitant]
     Active Substance: POTASSIUM CHLORIDE
     Indication: HYPOKALAEMIA
     Dosage: 1-1-1
     Route: 048
     Dates: end: 20190530
  3. BISOCE [Concomitant]
     Active Substance: BISOPROLOL
     Indication: CARDIOVASCULAR EVENT PROPHYLAXIS
     Dosage: 1-0-1
     Route: 048
  4. METFORMINE ARROW [Suspect]
     Active Substance: METFORMIN HYDROCHLORIDE
     Indication: DIABETES MELLITUS
     Dosage: 1-0-1
     Route: 048
     Dates: start: 20190402
  5. DEROXAT [Concomitant]
     Active Substance: PAROXETINE HYDROCHLORIDE
     Indication: DEPRESSION
     Dosage: 1-0-0
     Route: 048
  6. CLOPIDOGREL MYLAN 300 MG, COMPRIM? PELLICUL? [Suspect]
     Active Substance: CLOPIDOGREL HYDROCHLORIDE
     Indication: CEREBROVASCULAR ACCIDENT
     Dosage: 0-1-0
     Route: 048
     Dates: start: 20190406
  7. ATORVASTATINE ARROW [Suspect]
     Active Substance: ATORVASTATIN
     Indication: DYSLIPIDAEMIA
     Dosage: 0-0-2
     Route: 048
     Dates: start: 20190405, end: 20190514
  8. KEPPRA [Suspect]
     Active Substance: LEVETIRACETAM
     Indication: CEREBROVASCULAR ACCIDENT
     Dosage: 1-0-1
     Route: 048
     Dates: start: 20190403
  9. LAMICTAL [Suspect]
     Active Substance: LAMOTRIGINE
     Indication: CEREBROVASCULAR ACCIDENT
     Dosage: 1-0-0
     Route: 048
     Dates: start: 20190405, end: 20190514
  10. CORTANCYL [Concomitant]
     Active Substance: PREDNISONE
     Indication: CENTRAL NERVOUS SYSTEM VASCULITIS
     Dosage: 1-0-0
     Route: 048
     Dates: end: 20190524
  11. DEPAKINE                           /00228501/ [Suspect]
     Active Substance: VALPROIC ACID
     Indication: CEREBROVASCULAR ACCIDENT
     Dosage: 1-0-1
     Route: 048
     Dates: start: 20190514, end: 20190531
  12. FUNGIZONE [Suspect]
     Active Substance: AMPHOTERICIN B
     Indication: ORAL FUNGAL INFECTION
     Dosage: 1-1-1 (1 CUILL?RE ? CAF?)
     Route: 048
     Dates: start: 20190419, end: 20190514
  13. ELIQUIS [Suspect]
     Active Substance: APIXABAN
     Indication: ATRIAL FIBRILLATION
     Dosage: 1-0-1
     Route: 048
     Dates: start: 20190429

REACTIONS (2)
  - Condition aggravated [Recovered/Resolved]
  - Thrombocytopenia [Recovered/Resolved]

NARRATIVE: CASE EVENT DATE: 20190419
